FAERS Safety Report 13616235 (Version 1)
Quarter: 2017Q2

REPORT INFORMATION
  Report Type: Spontaneous
  Country: US (occurrence: US)
  Receive Date: 20170606
  Receipt Date: 20170606
  Transmission Date: 20170830
  Serious: No
  Sender: FDA-Public Use
  Company Number: US-TEVA-747333ACC

PATIENT
  Age: 39 Year
  Sex: Female
  Weight: 87.62 kg

DRUGS (1)
  1. EQUATE MICONAZOLE 3 [Suspect]
     Active Substance: MICONAZOLE
     Dosage: ONE TIME USE ONLY
     Dates: start: 20170213, end: 20170213

REACTIONS (2)
  - Drug ineffective [Unknown]
  - Adverse drug reaction [Unknown]

NARRATIVE: CASE EVENT DATE: 20170216
